FAERS Safety Report 11592847 (Version 3)
Quarter: 2015Q4

REPORT INFORMATION
  Report Type: Report from Study
  Country: US (occurrence: US)
  Receive Date: 20151005
  Receipt Date: 20151029
  Transmission Date: 20160304
  Serious: Yes (Other)
  Sender: FDA-Public Use
  Company Number: US-BIOGENIDEC-2015BI131104

PATIENT
  Age: 57 Year
  Sex: Female

DRUGS (20)
  1. ZOLOFT [Concomitant]
     Active Substance: SERTRALINE HYDROCHLORIDE
  2. DEXILANT [Concomitant]
     Active Substance: DEXLANSOPRAZOLE
  3. TYLENOL [Concomitant]
     Active Substance: ACETAMINOPHEN
  4. TECFIDERA [Suspect]
     Active Substance: DIMETHYL FUMARATE
     Indication: MULTIPLE SCLEROSIS
     Route: 048
     Dates: start: 201409, end: 201508
  5. BUTALBITAL [Concomitant]
     Active Substance: BUTALBITAL
  6. DULERA [Concomitant]
     Active Substance: FORMOTEROL FUMARATE DIHYDRATE\MOMETASONE FUROATE
  7. VENTOLIN [Concomitant]
     Active Substance: ALBUTEROL SULFATE
  8. TECFIDERA [Suspect]
     Active Substance: DIMETHYL FUMARATE
     Indication: MULTIPLE SCLEROSIS
     Route: 048
     Dates: start: 201402
  9. AMPYRA [Concomitant]
     Active Substance: DALFAMPRIDINE
     Indication: BALANCE DISORDER
     Route: 048
     Dates: start: 201412, end: 201508
  10. AUBAGIO (TERIFLUNOMIDE) [Concomitant]
  11. VITAMIN D [Concomitant]
     Active Substance: CHOLECALCIFEROL
  12. DIPHENHYDRAMINE. [Concomitant]
     Active Substance: DIPHENHYDRAMINE
  13. ZETIA [Concomitant]
     Active Substance: EZETIMIBE
  14. FLONASE [Concomitant]
     Active Substance: FLUTICASONE PROPIONATE
  15. VITAMIN C [Concomitant]
     Active Substance: ASCORBIC ACID
  16. AMPYRA [Concomitant]
     Active Substance: DALFAMPRIDINE
     Indication: MULTIPLE SCLEROSIS
     Route: 048
     Dates: start: 201412, end: 201508
  17. COPAXONE [Concomitant]
     Active Substance: GLATIRAMER ACETATE
  18. LEVOTHYROXINE. [Concomitant]
     Active Substance: LEVOTHYROXINE
  19. LORAZEPAM. [Concomitant]
     Active Substance: LORAZEPAM
  20. LOSARTAN. [Concomitant]
     Active Substance: LOSARTAN

REACTIONS (11)
  - Organising pneumonia [Unknown]
  - Headache [Unknown]
  - Depression [Not Recovered/Not Resolved]
  - Neuropathy peripheral [Unknown]
  - Drug ineffective [Recovered/Resolved]
  - Suicidal ideation [Unknown]
  - Burning sensation [Not Recovered/Not Resolved]
  - Balance disorder [Not Recovered/Not Resolved]
  - Flushing [Not Recovered/Not Resolved]
  - Migraine [Not Recovered/Not Resolved]
  - Neck pain [Not Recovered/Not Resolved]

NARRATIVE: CASE EVENT DATE: 201412
